FAERS Safety Report 9170205 (Version 3)
Quarter: 2013Q2

REPORT INFORMATION
  Report Type: Spontaneous
  Country: US (occurrence: US)
  Receive Date: 20130319
  Receipt Date: 20130418
  Transmission Date: 20140414
  Serious: Yes (Hospitalization)
  Sender: FDA-Public Use
  Company Number: US-CELGENEUS-163-21880-13031843

PATIENT
  Age: 69 Year
  Sex: Male

DRUGS (2)
  1. REVLIMID [Suspect]
     Indication: MONOCLONAL GAMMOPATHY
     Dosage: 25 MILLIGRAM
     Route: 048
     Dates: start: 20130218
  2. REVLIMID [Suspect]
     Indication: PLASMA CELL MYELOMA

REACTIONS (5)
  - Sleep apnoea syndrome [Not Recovered/Not Resolved]
  - Amyloidosis [Not Recovered/Not Resolved]
  - Renal failure [Unknown]
  - Cardiac failure congestive [Not Recovered/Not Resolved]
  - Pneumonia [Unknown]
